FAERS Safety Report 15902494 (Version 4)
Quarter: 2020Q1

REPORT INFORMATION
  Report Type: Spontaneous
  Country: CZ (occurrence: CZ)
  Receive Date: 20190201
  Receipt Date: 20200213
  Transmission Date: 20200409
  Serious: Yes (Other)
  Sender: FDA-Public Use
  Company Number: PHHY2019CZ019623

PATIENT
  Age: 62 Year
  Sex: Male

DRUGS (8)
  1. FLUDARABINE PHOSPHATE. [Suspect]
     Active Substance: FLUDARABINE PHOSPHATE
     Indication: CHRONIC LYMPHOCYTIC LEUKAEMIA
     Dosage: UNK, 3 CYCLIC
     Route: 042
     Dates: start: 2013
  2. ETOPOSIDE. [Suspect]
     Active Substance: ETOPOSIDE
     Indication: CHRONIC LYMPHOCYTIC LEUKAEMIA STAGE 4
     Dosage: 6 CYCLIC,50% REDUCTION
     Route: 042
  3. CYCLOPHOSPHAMIDE. [Suspect]
     Active Substance: CYCLOPHOSPHAMIDE
     Indication: CHRONIC LYMPHOCYTIC LEUKAEMIA
     Dosage: UNK, 6 CYCLIC
     Route: 065
  4. CYTOSINE ARABINOSIDE [Suspect]
     Active Substance: CYTARABINE
     Dosage: 6 CYCLIC,50% REDUCTION
     Route: 065
  5. METHYLPREDNISOLONE. [Suspect]
     Active Substance: METHYLPREDNISOLONE
     Indication: CHRONIC LYMPHOCYTIC LEUKAEMIA STAGE 4
     Dosage: 50% REDUCTION6
     Route: 065
  6. CISPLATIN. [Suspect]
     Active Substance: CISPLATIN
     Indication: CHRONIC LYMPHOCYTIC LEUKAEMIA STAGE 4
     Dosage: UNK, 6 CYCLIC 50% REDUCTION
     Route: 042
  7. RITUXIMAB. [Suspect]
     Active Substance: RITUXIMAB
     Indication: CHRONIC LYMPHOCYTIC LEUKAEMIA
     Dosage: UNK, 6 CYCLIC 50% REDUCTION
     Route: 065
  8. CYTOSINE ARABINOSIDE [Suspect]
     Active Substance: CYTARABINE
     Indication: CHRONIC LYMPHOCYTIC LEUKAEMIA STAGE 4
     Dosage: UNK
     Route: 065

REACTIONS (4)
  - Clostridium colitis [Recovered/Resolved]
  - Therapeutic response decreased [Unknown]
  - Febrile neutropenia [Recovered/Resolved]
  - Drug ineffective [Unknown]

NARRATIVE: CASE EVENT DATE: 2013
